FAERS Safety Report 4641099-7 (Version None)
Quarter: 2005Q2

REPORT INFORMATION
  Report Type: 
  Country: None (occurrence: None)
  Receive Date: 20050419
  Receipt Date: 20050419
  Transmission Date: 20051028
  Serious: Yes (Disabling)
  Sender: FDA-Public Use
  Company Number: None

PATIENT
  Age: 44 Year
  Sex: Male
  Weight: 83.9154 kg

DRUGS (2)
  1. ALBUTEROL [Suspect]
     Indication: ASTHMA
     Dosage: 2 X 4
  2. BECLOMETHESONE [Suspect]
     Indication: ASTHMA
     Dosage: 2 X 4

REACTIONS (2)
  - CEREBROSCLEROSIS [None]
  - SLEEP DISORDER [None]
